FAERS Safety Report 21218600 (Version 4)
Quarter: 2025Q1

REPORT INFORMATION
  Report Type: Report from Study
  Country: CA (occurrence: CA)
  Receive Date: 20220816
  Receipt Date: 20250212
  Transmission Date: 20250408
  Serious: No
  Sender: ROCHE
  Company Number: CA-ROCHE-3159093

PATIENT
  Sex: Female

DRUGS (2)
  1. OCREVUS [Suspect]
     Active Substance: OCRELIZUMAB
     Indication: Relapsing-remitting multiple sclerosis
     Dosage: 300 MG AT DAY 0 AND 14, THEN 600 MG EVERY 6 MONTH, THEN EVERY 5 MONTH
     Route: 042
     Dates: start: 20190822
  2. ALBUTEROL [Concomitant]
     Active Substance: ALBUTEROL

REACTIONS (3)
  - COVID-19 [Unknown]
  - Asthma [Not Recovered/Not Resolved]
  - Nasopharyngitis [Not Recovered/Not Resolved]
